FAERS Safety Report 17676164 (Version 1)
Quarter: 2020Q2

REPORT INFORMATION
  Report Type: Other
  Country: NL (occurrence: NL)
  Receive Date: 20200416
  Receipt Date: 20200416
  Transmission Date: 20200714
  Serious: Yes (Hospitalization, Other)
  Sender: FDA-Public Use
  Company Number: NL-ASTELLAS-2020US013378

PATIENT
  Age: 79 Year
  Sex: Male
  Weight: 65 kg

DRUGS (18)
  1. DIAZEPAM. [Concomitant]
     Active Substance: DIAZEPAM
     Indication: PRODUCT USED FOR UNKNOWN INDICATION
     Dosage: UNK UNK, UNKNOWN FREQ.
     Route: 065
  2. REGADENOSON [Suspect]
     Active Substance: REGADENOSON
     Indication: SCAN
     Dosage: 1 DF, (400 ?G/5ML), SINGLE
     Route: 065
     Dates: start: 20200218, end: 20200218
  3. REGADENOSON [Suspect]
     Active Substance: REGADENOSON
     Indication: PRODUCT USED FOR UNKNOWN INDICATION
  4. TAMSULOSIN [Concomitant]
     Active Substance: TAMSULOSIN
     Indication: PRODUCT USED FOR UNKNOWN INDICATION
     Dosage: UNK UNK, UNKNOWN FREQ.
     Route: 065
  5. OMEPRAZOLE. [Concomitant]
     Active Substance: OMEPRAZOLE
     Indication: PRODUCT USED FOR UNKNOWN INDICATION
     Dosage: UNK UNK, UNKNOWN FREQ.
     Route: 065
  6. BISOPROLOL [Concomitant]
     Active Substance: BISOPROLOL
     Indication: PRODUCT USED FOR UNKNOWN INDICATION
     Dosage: UNK UNK, UNKNOWN FREQ.
     Route: 065
  7. REGADENOSON [Suspect]
     Active Substance: REGADENOSON
     Indication: PRODUCT USED FOR UNKNOWN INDICATION
  8. REGADENOSON [Suspect]
     Active Substance: REGADENOSON
     Indication: PRODUCT USED FOR UNKNOWN INDICATION
  9. REGADENOSON [Suspect]
     Active Substance: REGADENOSON
     Indication: SCAN
     Dosage: 1 DF, (400 ?G/5ML), SINGLE
     Route: 065
     Dates: start: 20200218, end: 20200218
  10. REGADENOSON [Suspect]
     Active Substance: REGADENOSON
     Indication: SCAN
     Dosage: 1 DF, (400 ?G/5ML), SINGLE
     Route: 065
     Dates: start: 20200218, end: 20200218
  11. REGADENOSON [Suspect]
     Active Substance: REGADENOSON
     Indication: PRODUCT USED FOR UNKNOWN INDICATION
  12. ACETYLSALICYLZUUR [Concomitant]
     Active Substance: ASPIRIN
     Indication: PRODUCT USED FOR UNKNOWN INDICATION
     Dosage: UNK UNK, UNKNOWN FREQ.
     Route: 065
  13. BUMETANIDE. [Concomitant]
     Active Substance: BUMETANIDE
     Indication: PRODUCT USED FOR UNKNOWN INDICATION
     Dosage: UNK UNK, UNKNOWN FREQ.
     Route: 065
  14. REGADENOSON [Suspect]
     Active Substance: REGADENOSON
     Indication: SCAN
     Dosage: 1 DF, (400 ?G/5ML), SINGLE
     Route: 065
     Dates: start: 20200218, end: 20200218
  15. MONO-CEDOCARD [Concomitant]
     Active Substance: ISOSORBIDE MONONITRATE
     Indication: PRODUCT USED FOR UNKNOWN INDICATION
     Dosage: UNK UNK, UNKNOWN FREQ.
     Route: 065
  16. COTRIMOXAZOL [Concomitant]
     Active Substance: SULFAMETHOXAZOLE\TRIMETHOPRIM
     Indication: PRODUCT USED FOR UNKNOWN INDICATION
     Dosage: UNK UNK, UNKNOWN FREQ.
     Route: 065
  17. ROSUVASTATINE [ROSUVASTATIN] [Concomitant]
     Active Substance: ROSUVASTATIN
     Indication: PRODUCT USED FOR UNKNOWN INDICATION
     Dosage: UNK UNK, UNKNOWN FREQ.
     Route: 065
  18. PREGABALINE [Concomitant]
     Active Substance: PREGABALIN
     Indication: PRODUCT USED FOR UNKNOWN INDICATION
     Dosage: UNK UNK, UNKNOWN FREQ.
     Route: 065

REACTIONS (6)
  - Depressed level of consciousness [Recovering/Resolving]
  - Dyskinesia [Recovering/Resolving]
  - Seizure [Recovering/Resolving]
  - Headache [Recovering/Resolving]
  - Myoclonus [Recovering/Resolving]
  - Intention tremor [Recovering/Resolving]

NARRATIVE: CASE EVENT DATE: 20200218
